FAERS Safety Report 11572859 (Version 5)
Quarter: 2016Q3

REPORT INFORMATION
  Report Type: Report from Study
  Country: US (occurrence: US)
  Receive Date: 20150929
  Receipt Date: 20160811
  Transmission Date: 20161109
  Serious: Yes (Hospitalization, Other)
  Sender: FDA-Public Use
  Company Number: US-AMGEN-USASL2015099003

PATIENT
  Age: 62 Year
  Sex: Male

DRUGS (4)
  1. NPLATE [Suspect]
     Active Substance: ROMIPLOSTIM
     Indication: IMMUNE THROMBOCYTOPENIC PURPURA
     Dosage: QWK
     Route: 065
     Dates: start: 201305
  2. NPLATE [Suspect]
     Active Substance: ROMIPLOSTIM
     Dosage: UNK, Q3WK
     Route: 065
  3. NPLATE [Suspect]
     Active Substance: ROMIPLOSTIM
     Dosage: UNK MUG, Q2WK
     Route: 065
     Dates: start: 2016
  4. ASA [Concomitant]
     Active Substance: ASPIRIN
     Dosage: UNK

REACTIONS (9)
  - Cellulitis [Unknown]
  - Peripheral swelling [Unknown]
  - Fall [Unknown]
  - Contusion [Unknown]
  - Rectal haemorrhage [Unknown]
  - Herpes zoster [Unknown]
  - Pneumonia [Unknown]
  - Dizziness [Unknown]
  - Platelet count abnormal [Unknown]

NARRATIVE: CASE EVENT DATE: 2015
